FAERS Safety Report 18337996 (Version 1)
Quarter: 2020Q4

REPORT INFORMATION
  Report Type: Spontaneous
  Country: US (occurrence: US)
  Receive Date: 20201001
  Receipt Date: 20201001
  Transmission Date: 20210113
  Serious: Yes (Disabling)
  Sender: FDA-Public Use
  Company Number: None

PATIENT
  Age: 46 Year
  Sex: Female
  Weight: 79.2 kg

DRUGS (5)
  1. PREDNISONE. [Concomitant]
     Active Substance: PREDNISONE
  2. EMGALITY [Suspect]
     Active Substance: GALCANEZUMAB-GNLM
     Indication: MIGRAINE
     Route: 058
     Dates: start: 20200706, end: 20200805
  3. GABAPENTIN. [Concomitant]
     Active Substance: GABAPENTIN
  4. BOTOX [Concomitant]
     Active Substance: ONABOTULINUMTOXINA
  5. ALEVE [Concomitant]
     Active Substance: NAPROXEN SODIUM

REACTIONS (10)
  - Back pain [None]
  - Anxiety [None]
  - Dyspnoea [None]
  - Constipation [None]
  - Arthralgia [None]
  - Dry mouth [None]
  - Muscle strain [None]
  - Impaired work ability [None]
  - Weight increased [None]
  - Panic attack [None]

NARRATIVE: CASE EVENT DATE: 20200707
